FAERS Safety Report 10580151 (Version 1)
Quarter: 2014Q4

REPORT INFORMATION
  Report Type: Report from Study
  Country: BR (occurrence: BR)
  Receive Date: 20141112
  Receipt Date: 20141112
  Transmission Date: 20150529
  Serious: Yes (Death)
  Sender: FDA-Public Use
  Company Number: PHHY2014BR145206

PATIENT
  Sex: Female
  Weight: 50 kg

DRUGS (4)
  1. NEOTIAPIM [Suspect]
     Active Substance: QUETIAPINE
     Indication: OFF LABEL USE
  2. ATENOLOL. [Concomitant]
     Active Substance: ATENOLOL
     Indication: BLOOD PRESSURE
     Route: 065
  3. NEOTIAPIM [Suspect]
     Active Substance: QUETIAPINE
     Indication: DEMENTIA ALZHEIMER^S TYPE
     Dosage: 150 MG, QD
     Route: 048
     Dates: end: 20141010
  4. EXELON [Concomitant]
     Active Substance: RIVASTIGMINE TARTRATE
     Indication: MEMORY IMPAIRMENT
     Dosage: 1 DF, QD
     Route: 065
     Dates: end: 20141010

REACTIONS (4)
  - Eating disorder [Unknown]
  - Cardiac disorder [Fatal]
  - Food aversion [Unknown]
  - Asthenia [Fatal]
